FAERS Safety Report 6298626-6 (Version None)
Quarter: 2009Q3

REPORT INFORMATION
  Report Type: 
  Country: None (occurrence: None)
  Receive Date: 20090804
  Receipt Date: 20090720
  Transmission Date: 20100115
  Serious: Yes (Hospitalization)
  Sender: FDA-Public Use
  Company Number: 233051K09USA

PATIENT
  Age: 47 Year
  Sex: Female

DRUGS (3)
  1. REBIF [Suspect]
     Indication: MULTIPLE SCLEROSIS
     Dosage: 44 MCG, 3 IN 1 WEEKS, SUBCUTANEOUS
     Route: 058
     Dates: start: 20081023
  2. STEROIDS (CORTICOSTEROIDS) [Suspect]
     Indication: MULTIPLE SCLEROSIS RELAPSE
     Dates: start: 20090301, end: 20090301
  3. LOTREL         (AMLODIPINE BESYLATE W/BENAZEPRIL HYDROCHLOR.) [Concomitant]

REACTIONS (5)
  - CONSTIPATION [None]
  - HYPERHIDROSIS [None]
  - INFECTION [None]
  - MULTIPLE SCLEROSIS RELAPSE [None]
  - URINARY RETENTION [None]
